FAERS Safety Report 7742622-6 (Version None)
Quarter: 2011Q3

REPORT INFORMATION
  Report Type: 
  Country: None (occurrence: None)
  Receive Date: 20110912
  Receipt Date: 20110831
  Transmission Date: 20111222
  Serious: Yes (Other)
  Sender: FDA-Public Use
  Company Number: PHFR2004GB04601

PATIENT
  Sex: Male

DRUGS (6)
  1. CLOZAPINE [Suspect]
     Indication: SCHIZOPHRENIA
     Route: 048
     Dates: start: 19971110
  2. CLOZAPINE [Suspect]
     Route: 048
     Dates: start: 20070129
  3. CLOZAPINE [Suspect]
     Dosage: 300 MG/DAY
     Route: 048
  4. OXAZEPAM [Concomitant]
     Indication: ANXIETY
     Dosage: 10MG/DAY
     Route: 048
     Dates: start: 20010627
  5. LANSOPRAZOLE [Suspect]
     Indication: GASTROOESOPHAGEAL REFLUX DISEASE
     Dosage: 15MG/DAY
     Route: 048
     Dates: start: 20031001
  6. PIRENZEPINE [Concomitant]
     Indication: SALIVARY HYPERSECRETION
     Dosage: 50 MG/DAY
     Route: 048

REACTIONS (4)
  - THROMBOCYTOPENIA [None]
  - HEPATITIS C VIRUS TEST POSITIVE [None]
  - RASH [None]
  - CIRRHOSIS ALCOHOLIC [None]
